FAERS Safety Report 24995974 (Version 1)
Quarter: 2025Q1

REPORT INFORMATION
  Report Type: Spontaneous
  Country: US (occurrence: US)
  Receive Date: 20250221
  Receipt Date: 20250221
  Transmission Date: 20250409
  Serious: No
  Sender: CATALYST PHARMA
  Company Number: US-CATALYST PHARMACEUTICALS-US-CATA-24-01366

PATIENT
  Sex: Male
  Weight: 27.211 kg

DRUGS (12)
  1. AGAMREE [Suspect]
     Active Substance: VAMOROLONE
     Indication: Duchenne muscular dystrophy
     Dosage: 3.5 ML ONCE A DAY
     Route: 048
     Dates: start: 20240705, end: 20240815
  2. AGAMREE [Suspect]
     Active Substance: VAMOROLONE
     Dosage: 4 ML ONCE A DAY
     Route: 048
     Dates: start: 20240816
  3. MAGNESIUM [Concomitant]
     Active Substance: MAGNESIUM
     Indication: Sleep disorder
     Dosage: 200 MG A BED TIME
     Route: 065
  4. MAGNESIUM [Concomitant]
     Active Substance: MAGNESIUM
     Indication: Muscle spasms
  5. VITAMIN D [Concomitant]
     Active Substance: VITAMIN D NOS
     Indication: Hypovitaminosis
     Dosage: 0.5 ML ONCE A DAY
     Route: 065
  6. VITAMINS [Concomitant]
     Active Substance: VITAMINS
     Indication: Hypovitaminosis
     Dosage: ONCE A DAY
     Route: 065
  7. FLONASE [Concomitant]
     Active Substance: FLUTICASONE PROPIONATE
     Indication: Seasonal allergy
     Route: 045
  8. ZINC [Concomitant]
     Active Substance: ZINC
     Indication: Immune system disorder
     Dosage: 50 MG ONCE A DAY
     Route: 065
  9. VITAMIN B COMPLEX [Concomitant]
     Active Substance: CYANOCOBALAMIN\DEXPANTHENOL\NIACINAMIDE\PYRIDOXINE HYDROCHLORIDE\RIBOFLAVIN 5^-PHOSPHATE SODIUM\THIA
     Indication: Nervous system disorder
     Dosage: 0.5 ML ONCE A DAY
     Route: 065
  10. TYLENOL [Concomitant]
     Active Substance: ACETAMINOPHEN
     Indication: Pain
     Route: 065
  11. TYLENOL [Concomitant]
     Active Substance: ACETAMINOPHEN
     Indication: Pyrexia
  12. VYONDYS [Concomitant]
     Indication: Duchenne muscular dystrophy
     Dosage: 100MG/2ML WEEKLY
     Route: 042

REACTIONS (2)
  - Weight increased [Not Recovered/Not Resolved]
  - Swelling face [Not Recovered/Not Resolved]

NARRATIVE: CASE EVENT DATE: 20240101
